FAERS Safety Report 16757106 (Version 1)
Quarter: 2019Q3

REPORT INFORMATION
  Report Type: Report from Study
  Country: US (occurrence: US)
  Receive Date: 20190829
  Receipt Date: 20190829
  Transmission Date: 20191005
  Serious: Yes (Hospitalization, Other)
  Sender: FDA-Public Use
  Company Number: US-GILEAD-2019-0425523

PATIENT
  Sex: Male

DRUGS (2)
  1. AXICABTAGENE CILOLEUCEL [Suspect]
     Active Substance: AXICABTAGENE CILOLEUCEL
     Indication: B-CELL UNCLASSIFIABLE LYMPHOMA HIGH GRADE
  2. AXICABTAGENE CILOLEUCEL [Suspect]
     Active Substance: AXICABTAGENE CILOLEUCEL
     Indication: NON-HODGKIN^S LYMPHOMA
     Dosage: UNK
     Route: 042
     Dates: start: 20190415, end: 20190415

REACTIONS (20)
  - Vomiting [Unknown]
  - Fatigue [Not Recovered/Not Resolved]
  - White blood cell count decreased [Unknown]
  - Muscle disorder [Not Recovered/Not Resolved]
  - Joint swelling [Not Recovered/Not Resolved]
  - Neuropathy peripheral [Not Recovered/Not Resolved]
  - Metastasis [Unknown]
  - Gastrointestinal motility disorder [Unknown]
  - Discomfort [Unknown]
  - Heart rate irregular [Recovered/Resolved]
  - Hypotension [Unknown]
  - Influenza [Recovered/Resolved]
  - Dysgraphia [Not Recovered/Not Resolved]
  - Retching [Unknown]
  - Diarrhoea [Unknown]
  - Pain [Recovered/Resolved]
  - Pain in extremity [Not Recovered/Not Resolved]
  - Hypophagia [Recovered/Resolved]
  - Asthenia [Recovered/Resolved]
  - Nerve injury [Not Recovered/Not Resolved]
